FAERS Safety Report 9389068 (Version 1)
Quarter: 2013Q3

REPORT INFORMATION
  Report Type: Spontaneous
  Country: TR (occurrence: TR)
  Receive Date: 20130708
  Receipt Date: 20130708
  Transmission Date: 20140515
  Serious: Yes (Hospitalization, Other)
  Sender: FDA-Public Use
  Company Number: PHHY2013TR070904

PATIENT
  Age: 52 Year
  Sex: Male

DRUGS (1)
  1. CLOZAPINE [Suspect]
     Indication: MAJOR DEPRESSION
     Dosage: UNK
     Dates: start: 2010

REACTIONS (8)
  - Neuroleptic malignant syndrome [Recovered/Resolved]
  - Pyrexia [Unknown]
  - Leukocytosis [Unknown]
  - Muscle rigidity [Unknown]
  - Blood creatine phosphokinase increased [Unknown]
  - Catatonia [Unknown]
  - Impaired self-care [Unknown]
  - Decreased appetite [Unknown]
